FAERS Safety Report 8522601-1 (Version None)
Quarter: 2012Q3

REPORT INFORMATION
  Report Type: 
  Country: None (occurrence: None)
  Receive Date: 20120719
  Receipt Date: 20120711
  Transmission Date: 20120928
  Serious: Yes (Hospitalization, Other)
  Sender: FDA-Public Use
  Company Number: US-UCBSA-055286

PATIENT
  Age: 46 Year
  Sex: Female
  Weight: 49.9 kg

DRUGS (1)
  1. CIMZIA [Suspect]
     Indication: RHEUMATOID ARTHRITIS
     Dosage: ADMINISTERED SELF IN THE THIGH (ONLY HAD A TOTAL OF 3 INDIVIDUAL SYRINGE INJECTIONS OR 600 MG TOTAL)
     Route: 058
     Dates: start: 20100324, end: 20100701

REACTIONS (6)
  - PYREXIA [None]
  - WHITE BLOOD CELL COUNT DECREASED [None]
  - PARAESTHESIA [None]
  - PAIN IN EXTREMITY [None]
  - SYSTEMIC LUPUS ERYTHEMATOSUS [None]
  - HYPOAESTHESIA [None]
